FAERS Safety Report 15574758 (Version 2)
Quarter: 2018Q4

REPORT INFORMATION
  Report Type: Spontaneous
  Country: IT (occurrence: IT)
  Receive Date: 20181101
  Receipt Date: 20181128
  Transmission Date: 20190205
  Serious: Yes (Death, Hospitalization)
  Sender: FDA-Public Use
  Company Number: IT-ABBVIE-18K-083-2494286-00

PATIENT
  Age: 80 Year
  Sex: Male

DRUGS (3)
  1. MAVIRET [Suspect]
     Active Substance: GLECAPREVIR\PIBRENTASVIR
     Indication: CHRONIC HEPATITIS C
     Dosage: 300/120 MG
     Route: 048
     Dates: start: 20180706, end: 20180912
  2. ALBUMIN [Concomitant]
     Active Substance: ALBUMIN HUMAN
     Indication: NEPHROTIC SYNDROME
     Dosage: PERIODIC
     Route: 042
  3. MAVIRET [Suspect]
     Active Substance: GLECAPREVIR\PIBRENTASVIR
     Indication: HEPATIC CIRRHOSIS

REACTIONS (2)
  - Bronchopulmonary aspergillosis [Fatal]
  - Hepatic failure [Unknown]

NARRATIVE: CASE EVENT DATE: 201809
